FAERS Safety Report 9053378 (Version 1)
Quarter: 2013Q1

REPORT INFORMATION
  Report Type: Report from Study
  Country: US (occurrence: US)
  Receive Date: 20130208
  Receipt Date: 20130208
  Transmission Date: 20140127
  Serious: Yes (Other)
  Sender: FDA-Public Use
  Company Number: US-BAYER-2012-120553

PATIENT
  Age: 36 Year
  Sex: Female

DRUGS (3)
  1. BETASERON [Suspect]
     Indication: RELAPSING-REMITTING MULTIPLE SCLEROSIS
     Dosage: 4 MIU, QOD
     Route: 058
     Dates: start: 20121029, end: 2012
  2. BETASERON [Suspect]
     Indication: RELAPSING-REMITTING MULTIPLE SCLEROSIS
     Dosage: 8 MIU, QOD
     Route: 058
     Dates: start: 2012, end: 20130110
  3. TRAMADOL [Concomitant]
     Indication: HEADACHE

REACTIONS (6)
  - Abasia [Recovered/Resolved]
  - Off label use [None]
  - Restless legs syndrome [Not Recovered/Not Resolved]
  - Tongue dry [Not Recovered/Not Resolved]
  - Glossodynia [Not Recovered/Not Resolved]
  - Thirst [Not Recovered/Not Resolved]
